FAERS Safety Report 5330392-0 (Version None)
Quarter: 2007Q2

REPORT INFORMATION
  Report Type: 
  Country: None (occurrence: None)
  Receive Date: 20070521
  Receipt Date: 20070515
  Transmission Date: 20071010
  Serious: Yes (Other)
  Sender: FDA-Public Use
  Company Number: US-PFIZER INC-2007022906

PATIENT
  Sex: Male

DRUGS (1)
  1. NARDIL [Suspect]

REACTIONS (6)
  - BRAIN STEM HAEMORRHAGE [None]
  - DEPRESSED LEVEL OF CONSCIOUSNESS [None]
  - HAEMORRHAGIC STROKE [None]
  - INSOMNIA [None]
  - RESPIRATORY DISORDER [None]
  - TEMPERATURE REGULATION DISORDER [None]
